FAERS Safety Report 8167795-5 (Version None)
Quarter: 2012Q1

REPORT INFORMATION
  Report Type: 
  Country: None (occurrence: None)
  Receive Date: 20120227
  Receipt Date: 20120210
  Transmission Date: 20120608
  Serious: Yes (Disabling, Other)
  Sender: FDA-Public Use
  Company Number: SI-ROCHE-1043077

PATIENT
  Sex: Male

DRUGS (1)
  1. ISOTRETINOIN [Suspect]
     Indication: ACNE
     Dosage: 60-90 MG DAILY
     Route: 048
     Dates: start: 20070101, end: 20090101

REACTIONS (6)
  - THIRST [None]
  - BLOOD CREATINE PHOSPHOKINASE INCREASED [None]
  - POLLAKIURIA [None]
  - MYALGIA [None]
  - ARTHRALGIA [None]
  - BLOOD PRESSURE FLUCTUATION [None]
